FAERS Safety Report 6644216-2 (Version None)
Quarter: 2010Q1

REPORT INFORMATION
  Report Type: 
  Country: None (occurrence: None)
  Receive Date: 20100319
  Receipt Date: 20100319
  Transmission Date: 20100710
  Serious: No
  Sender: FDA-Public Use
  Company Number: None

PATIENT

DRUGS (1)
  1. CARDURA [Suspect]

REACTIONS (5)
  - ABDOMINAL PAIN UPPER [None]
  - EYE IRRITATION [None]
  - GAIT DISTURBANCE [None]
  - HAEMORRHAGE [None]
  - UNEVALUABLE EVENT [None]
